FAERS Safety Report 4538239-7 (Version None)
Quarter: 2004Q4

REPORT INFORMATION
  Report Type: 
  Country: None (occurrence: None)
  Receive Date: 20041227
  Receipt Date: 20041215
  Transmission Date: 20050328
  Serious: Yes (Hospitalization)
  Sender: FDA-Public Use
  Company Number: JP-JNJFOC-20040702321

PATIENT
  Sex: Female
  Weight: 35.4 kg

DRUGS (14)
  1. REMICADE [Suspect]
     Route: 042
  2. REMICADE [Suspect]
     Route: 042
  3. REMICADE [Suspect]
     Route: 042
  4. REMICADE [Suspect]
     Dosage: 108.3MG
     Route: 042
  5. REMICADE [Suspect]
     Route: 042
  6. REMICADE [Suspect]
     Indication: RHEUMATOID ARTHRITIS
     Route: 042
  7. RHEUMATREX [Suspect]
     Indication: RHEUMATOID ARTHRITIS
  8. PREDONINE [Suspect]
     Indication: RHEUMATOID ARTHRITIS
     Route: 049
  9. ZANTAC [Concomitant]
     Route: 049
  10. ALFAROL [Concomitant]
     Route: 049
  11. NORVASC [Concomitant]
     Route: 049
  12. FOSAMAC [Concomitant]
     Route: 049
  13. INNOLET [Concomitant]
     Dosage: 16U
     Route: 058
  14. LENDORMIN [Concomitant]
     Route: 049

REACTIONS (11)
  - ARTHRALGIA [None]
  - BACTERIA BLOOD IDENTIFIED [None]
  - C-REACTIVE PROTEIN INCREASED [None]
  - COUGH [None]
  - FATIGUE [None]
  - HEPATIC FUNCTION ABNORMAL [None]
  - INFECTION IN AN IMMUNOCOMPROMISED HOST [None]
  - INFLAMMATION [None]
  - NASOPHARYNGITIS [None]
  - SEPSIS [None]
  - WHITE BLOOD CELL COUNT INCREASED [None]
